FAERS Safety Report 6271399-9 (Version None)
Quarter: 2009Q3

REPORT INFORMATION
  Report Type: 
  Country: None (occurrence: None)
  Receive Date: 20090717
  Receipt Date: 20090709
  Transmission Date: 20100115
  Serious: Yes (Disabling)
  Sender: FDA-Public Use
  Company Number: US-ROCHE-643471

PATIENT
  Age: 54 Year
  Sex: Female

DRUGS (1)
  1. KLONOPIN [Suspect]
     Indication: PANIC DISORDER
     Dosage: 1 MG AT BEDTIME AND 1 MG AS NEEDED DURING THE DAY
     Route: 048
     Dates: start: 19910101

REACTIONS (4)
  - ASTHENIA [None]
  - AUTONOMIC NEUROPATHY [None]
  - IMPAIRED WORK ABILITY [None]
  - SYNCOPE [None]
